FAERS Safety Report 10177294 (Version 2)
Quarter: 2014Q2

REPORT INFORMATION
  Report Type: Spontaneous
  Country: DZ (occurrence: DZ)
  Receive Date: 20140516
  Receipt Date: 20140527
  Transmission Date: 20141212
  Serious: Yes (Life-Threatening, Hospitalization, Other)
  Sender: FDA-Public Use
  Company Number: DZ-GLAXOSMITHKLINE-B0993752A

PATIENT
  Age: 7 Year
  Sex: Female

DRUGS (1)
  1. FLIXOTIDE [Suspect]
     Indication: ASTHMA
     Dosage: 50MCG PER DAY
     Route: 055
     Dates: start: 20140318

REACTIONS (3)
  - Respiratory distress [Recovered/Resolved]
  - Face oedema [Recovered/Resolved]
  - Cyanosis [Recovered/Resolved]
